FAERS Safety Report 8830510 (Version 2)
Quarter: 2012Q4

REPORT INFORMATION
  Report Type: 
  Country: US (occurrence: US)
  Receive Date: 20121009
  Receipt Date: 20121017
  Transmission Date: 20130627
  Serious: Yes (Hospitalization)
  Sender: FDA-Public Use
  Company Number: US-ACTELION-A-US2012-72096

PATIENT
  Age: 16 Year
  Sex: Male

DRUGS (1)
  1. VELETRI [Suspect]
     Indication: PULMONARY ARTERIAL HYPERTENSION
     Dosage: 51 ng/kg, per min
     Route: 042
     Dates: start: 20120428

REACTIONS (2)
  - Lung transplant [Unknown]
  - Pulmonary hypertension [Unknown]
